FAERS Safety Report 5130019-7 (Version None)
Quarter: 2006Q4

REPORT INFORMATION
  Report Type: 
  Country: None (occurrence: None)
  Receive Date: 20061013
  Receipt Date: 20061002
  Transmission Date: 20070319
  Serious: Yes (Other)
  Sender: FDA-Public Use
  Company Number: 2006120907

PATIENT
  Age: 78 Year
  Sex: Male

DRUGS (6)
  1. ZYVOX [Suspect]
     Indication: PNEUMONIA STAPHYLOCOCCAL
     Dosage: INTRAVENOUS
     Route: 042
     Dates: start: 20060928, end: 20060930
  2. CIBENOL (CIBENZOLINE SUCCINATE) [Suspect]
     Indication: ARRHYTHMIA
     Dates: start: 20060925, end: 20060930
  3. DIGOXIN [Suspect]
     Indication: ARRHYTHMIA
     Dosage: ORAL
     Route: 048
     Dates: start: 20060925, end: 20060930
  4. LANIRAPID (METILDIGOXIN) [Suspect]
     Indication: ARRHYTHMIA
     Dosage: ORAL
     Route: 048
     Dates: start: 20060923, end: 20060930
  5. VERAPAMIL HYDROCHLORIDE [Suspect]
     Indication: ARRHYTHMIA
     Dates: start: 20060923, end: 20060930
  6. CARVEDILOL [Suspect]
     Indication: ARRHYTHMIA
     Dosage: ORAL
     Route: 048
     Dates: start: 20060925, end: 20060930

REACTIONS (2)
  - BLOOD POTASSIUM DECREASED [None]
  - TORSADE DE POINTES [None]
